FAERS Safety Report 4881806-1 (Version None)
Quarter: 2006Q1

REPORT INFORMATION
  Report Type: 
  Country: None (occurrence: None)
  Receive Date: 20060112
  Receipt Date: 20060112
  Transmission Date: 20060701
  Serious: Yes (Hospitalization)
  Sender: FDA-Public Use
  Company Number: None

PATIENT
  Age: 83 Year
  Sex: Male
  Weight: 60.2 kg

DRUGS (1)
  1. METOPROLOL [Suspect]
     Indication: ATRIAL TACHYCARDIA
     Dosage: 12.5MG BID PO
     Route: 048

REACTIONS (5)
  - DIZZINESS [None]
  - GASTRIC POLYPS [None]
  - GASTROINTESTINAL HAEMORRHAGE [None]
  - ORTHOSTATIC HYPOTENSION [None]
  - OVERDOSE [None]
